FAERS Safety Report 5902037-X (Version None)
Quarter: 2008Q3

REPORT INFORMATION
  Report Type: 
  Country: None (occurrence: None)
  Receive Date: 20080909
  Receipt Date: 20080206
  Transmission Date: 20090109
  Serious: Yes (Other)
  Sender: FDA-Public Use
  Company Number: US-WYE-H02498008

PATIENT
  Age: 25 Year
  Sex: Female
  Weight: 90.8 kg

DRUGS (1)
  1. ADVIL [Suspect]
     Indication: GASTROINTESTINAL PAIN
     Dosage: 3 CAPSULE 1X PER 6 HR, ORAL
     Route: 048
     Dates: start: 20080101, end: 20080101

REACTIONS (1)
  - GASTROOESOPHAGEAL REFLUX DISEASE [None]
